FAERS Safety Report 18874520 (Version 1)
Quarter: 2021Q1

REPORT INFORMATION
  Report Type: Spontaneous
  Country: US (occurrence: US)
  Receive Date: 20210211
  Receipt Date: 20210211
  Transmission Date: 20210420
  Serious: No
  Sender: FDA-Public Use
  Company Number: US-SA-2021SA043920

PATIENT
  Sex: Female

DRUGS (2)
  1. FABRAZYME [Suspect]
     Active Substance: AGALSIDASE BETA
     Indication: END STAGE RENAL DISEASE
     Dosage: 25 MG, EVERY 2 WEEKS
     Route: 042
     Dates: start: 20191217
  2. FABRAZYME [Suspect]
     Active Substance: AGALSIDASE BETA
     Indication: FABRY^S DISEASE
     Dosage: 95 MG, QOW
     Route: 041
     Dates: start: 20191217

REACTIONS (2)
  - Coronavirus test positive [Unknown]
  - COVID-19 [Unknown]
